FAERS Safety Report 7501449-0 (Version None)
Quarter: 2011Q2

REPORT INFORMATION
  Report Type: 
  Country: None (occurrence: None)
  Receive Date: 20110524
  Receipt Date: 20110519
  Transmission Date: 20111010
  Serious: Yes (Death, Hospitalization)
  Sender: FDA-Public Use
  Company Number: PHHY2011US11700

PATIENT
  Age: 87 Year
  Sex: Male
  Weight: 86 kg

DRUGS (22)
  1. GLEEVEC [Suspect]
     Indication: ACUTE MYELOID LEUKAEMIA
     Dosage: 400 MG, DAILY
     Route: 048
     Dates: start: 20091001
  2. BUDESONIDE [Concomitant]
  3. METOPROLOL [Concomitant]
  4. NEXIUM [Concomitant]
  5. IPRATROPIUM BROMIDE [Concomitant]
  6. ASCORBIC ACID [Concomitant]
  7. SENNA-MINT WAF [Concomitant]
  8. FOSAMAX PLUS D [Concomitant]
  9. SERTRALINE HYDROCHLORIDE [Concomitant]
  10. ACIDOPHILUS [Concomitant]
  11. VANCOCIN HYDROCHLORIDE [Concomitant]
  12. WARFARIN SODIUM [Concomitant]
  13. MAGNESIUM [Concomitant]
  14. DIGOXIN [Concomitant]
  15. KLOR-CON [Concomitant]
  16. FUROSEMIDE [Concomitant]
  17. XOPENEX [Concomitant]
  18. LIPITOR [Concomitant]
  19. MULTI-VITAMINS [Concomitant]
  20. CALCIUM CARBONATE [Concomitant]
  21. VITAMIN B COMPLEX CAP [Concomitant]
  22. FERROUS SULFATE TAB [Concomitant]

REACTIONS (4)
  - HERPES ZOSTER [None]
  - CHRONIC OBSTRUCTIVE PULMONARY DISEASE [None]
  - CELLULITIS [None]
  - SWELLING FACE [None]
